FAERS Safety Report 20071534 (Version 3)
Quarter: 2022Q4

REPORT INFORMATION
  Report Type: Report from Study
  Country: JP (occurrence: JP)
  Receive Date: 20211115
  Receipt Date: 20221006
  Transmission Date: 20230112
  Serious: Yes (Other)
  Sender: FDA-Public Use
  Company Number: JP-NOVARTISPH-NVSJ2021JP018511

PATIENT
  Sex: Male
  Weight: 47.5 kg

DRUGS (3)
  1. KYMRIAH [Suspect]
     Active Substance: TISAGENLECLEUCEL
     Indication: Acute lymphocytic leukaemia
     Dosage: FULL DOSE ADMINISTRATION, TOTAL CELL ADMINISTERED: 28.1X10^6
     Route: 041
     Dates: start: 20200812, end: 20200812
  2. FLUDARABINE PHOSPHATE [Concomitant]
     Active Substance: FLUDARABINE PHOSPHATE
     Indication: Lymphodepletion
     Dosage: 120 MG/M2
     Route: 065
     Dates: start: 20200806
  3. CYCLOPHOSPHAMIDE [Concomitant]
     Active Substance: CYCLOPHOSPHAMIDE
     Indication: Lymphodepletion
     Dosage: 1000 MG/M2
     Route: 065
     Dates: start: 20220806

REACTIONS (3)
  - Graft versus host disease in gastrointestinal tract [Unknown]
  - Diarrhoea [Recovered/Resolved]
  - Cytokine release syndrome [Unknown]
